FAERS Safety Report 5154630-2 (Version None)
Quarter: 2006Q4

REPORT INFORMATION
  Report Type: 
  Country: None (occurrence: None)
  Receive Date: 20061113
  Receipt Date: 20061031
  Transmission Date: 20070319
  Serious: Yes (Other)
  Sender: FDA-Public Use
  Company Number: 2006122022

PATIENT
  Age: 68 Year
  Sex: Female

DRUGS (1)
  1. TOLTERODINE TARTRATE [Suspect]
     Indication: HYPERTONIC BLADDER
     Dosage: ORAL
     Route: 048
     Dates: start: 20060920, end: 20060101

REACTIONS (1)
  - HYPOTHYROIDISM [None]
